FAERS Safety Report 13894970 (Version 2)
Quarter: 2017Q4

REPORT INFORMATION
  Report Type: Report from Study
  Country: None (occurrence: BR)
  Receive Date: 20170823
  Receipt Date: 20171206
  Transmission Date: 20180320
  Serious: Yes (Other)
  Sender: FDA-Public Use
  Company Number: BR-ABBVIE-17K-020-2074483-00

PATIENT
  Age: 40 Year
  Sex: Male
  Weight: 68 kg

DRUGS (2)
  1. HUMIRA [Suspect]
     Active Substance: ADALIMUMAB
     Route: 058
     Dates: start: 2017
  2. HUMIRA [Suspect]
     Active Substance: ADALIMUMAB
     Indication: ANKYLOSING SPONDYLITIS
     Route: 058
     Dates: start: 20100519, end: 2017

REACTIONS (21)
  - Reflux laryngitis [Unknown]
  - Hyperchlorhydria [Unknown]
  - Abdominal pain [Recovered/Resolved]
  - Haemorrhoids thrombosed [Not Recovered/Not Resolved]
  - Umbilical hernia [Unknown]
  - Blister [Recovered/Resolved]
  - Nephrolithiasis [Not Recovered/Not Resolved]
  - Gastrooesophageal reflux disease [Recovered/Resolved]
  - Arthritis [Not Recovered/Not Resolved]
  - Haemorrhoids thrombosed [Recovered/Resolved]
  - Peripheral swelling [Recovered/Resolved]
  - Gastrooesophageal reflux disease [Not Recovered/Not Resolved]
  - Inflammation [Recovered/Resolved]
  - Pharyngeal inflammation [Not Recovered/Not Resolved]
  - Skin papilloma [Not Recovered/Not Resolved]
  - Sinusitis [Recovering/Resolving]
  - Joint swelling [Not Recovered/Not Resolved]
  - Catarrh [Recovering/Resolving]
  - Anal fissure [Unknown]
  - Nasal congestion [Recovered/Resolved]
  - Epistaxis [Recovered/Resolved]

NARRATIVE: CASE EVENT DATE: 201402
